FAERS Safety Report 14861276 (Version 4)
Quarter: 2018Q3

REPORT INFORMATION
  Report Type: Spontaneous
  Country: CH (occurrence: CH)
  Receive Date: 20180508
  Receipt Date: 20180831
  Transmission Date: 20181010
  Serious: Yes (Other)
  Sender: FDA-Public Use
  Company Number: CH-GILEAD-2018-0336899

PATIENT
  Age: 63 Year
  Sex: Male

DRUGS (1)
  1. HARVONI [Suspect]
     Active Substance: LEDIPASVIR\SOFOSBUVIR
     Indication: CHRONIC HEPATITIS C
     Dosage: UNK
     Route: 065
     Dates: start: 201506, end: 201508

REACTIONS (8)
  - Hepatitis cholestatic [Unknown]
  - Liver transplant [Unknown]
  - Drug ineffective [Unknown]
  - Hepatocellular carcinoma [Unknown]
  - Hepatitis C [Unknown]
  - Hepatic cirrhosis [Unknown]
  - Transplant rejection [Unknown]
  - Liver function test increased [Unknown]

NARRATIVE: CASE EVENT DATE: 2016
